FAERS Safety Report 6866913-6 (Version None)
Quarter: 2010Q2

REPORT INFORMATION
  Report Type: 
  Country: None (occurrence: None)
  Receive Date: 20100610
  Receipt Date: 20091230
  Transmission Date: 20101027
  Serious: No
  Sender: FDA-Public Use
  Company Number: 2010SP000921

PATIENT
  Sex: Female

DRUGS (5)
  1. SAPHRIS [Suspect]
     Indication: BIPOLAR DISORDER
     Dosage: 5 MG; HS; SL
     Route: 060
     Dates: start: 20091209
  2. SAPHRIS [Suspect]
     Dosage: 10 MG; HS;
     Dates: end: 20100215
  3. LITHIUM [Concomitant]
  4. PROZAC [Concomitant]
  5. TEGRETOL [Concomitant]

REACTIONS (7)
  - DIZZINESS [None]
  - DYSGEUSIA [None]
  - HYPOAESTHESIA ORAL [None]
  - INAPPROPRIATE SCHEDULE OF DRUG ADMINISTRATION [None]
  - NAUSEA [None]
  - PARAESTHESIA [None]
  - UNDERDOSE [None]
